FAERS Safety Report 9580025 (Version 1)
Quarter: 2013Q3

REPORT INFORMATION
  Report Type: Spontaneous
  Country: FR (occurrence: None)
  Receive Date: 20130930
  Receipt Date: 20130930
  Transmission Date: 20140515
  Serious: Yes (Other)
  Sender: FDA-Public Use
  Company Number: B0924701A

PATIENT
  Age: 55 Year
  Sex: Male

DRUGS (1)
  1. ACYCLOVIR (FORMULATION UNKNOWN) (GENERIC) (ACYCLOVIR) [Suspect]
     Indication: PRODUCT USED FOR UNKNOWN INDICATION

REACTIONS (3)
  - Scar [None]
  - Drug reaction with eosinophilia and systemic symptoms [None]
  - Skin test positive [None]
